FAERS Safety Report 12486524 (Version 1)
Quarter: 2016Q2

REPORT INFORMATION
  Report Type: Spontaneous
  Country: US (occurrence: US)
  Receive Date: 20160621
  Receipt Date: 20160621
  Transmission Date: 20160815
  Serious: Yes (Disabling, Other)
  Sender: FDA-Public Use
  Company Number: US-PFIZER INC-2016303592

PATIENT
  Age: 60 Year
  Sex: Male
  Weight: 104.33 kg

DRUGS (4)
  1. REVATIO [Suspect]
     Active Substance: SILDENAFIL CITRATE
     Indication: LUNG DISORDER
     Dosage: 20 MG, 3X/DAY (20MG 1 THREE TIMES A DAY)
     Route: 048
     Dates: start: 201404
  2. DEXILANT [Concomitant]
     Active Substance: DEXLANSOPRAZOLE
     Indication: PROPHYLAXIS
     Dosage: 30 MG, DAILY
     Dates: start: 201404
  3. REVATIO [Suspect]
     Active Substance: SILDENAFIL CITRATE
     Indication: DYSPNOEA
  4. FLEXERIL [Concomitant]
     Active Substance: CYCLOBENZAPRINE HYDROCHLORIDE
     Indication: MUSCLE SPASMS
     Dosage: 5 MG, TWICE DAILY AS NEEDED
     Dates: start: 201404

REACTIONS (16)
  - Back pain [Unknown]
  - Increased tendency to bruise [Unknown]
  - Wrist fracture [Unknown]
  - Pain [Not Recovered/Not Resolved]
  - Tooth loss [Unknown]
  - Intervertebral disc protrusion [Unknown]
  - Spinal disorder [Unknown]
  - Spondylolisthesis [Unknown]
  - Hypoaesthesia [Unknown]
  - Haemorrhage [Unknown]
  - Intervertebral disc degeneration [Unknown]
  - Road traffic accident [Unknown]
  - Somnolence [Unknown]
  - Arthropathy [Unknown]
  - Arthritis [Unknown]
  - Asthenia [Unknown]

NARRATIVE: CASE EVENT DATE: 20160211
